FAERS Safety Report 17739874 (Version 1)
Quarter: 2020Q2

REPORT INFORMATION
  Report Type: Report from Study
  Country: CN (occurrence: CN)
  Receive Date: 20200504
  Receipt Date: 20200504
  Transmission Date: 20200714
  Serious: Yes (Other)
  Sender: FDA-Public Use
  Company Number: CN-ROCHE-2592653

PATIENT

DRUGS (2)
  1. CAPECITABINE. [Suspect]
     Active Substance: CAPECITABINE
     Indication: NASOPHARYNGEAL CANCER METASTATIC
     Dosage: 1-1.25 G/M2 TWICE DAILY IN 4-WEEK CYCLES, CONSISTING OF 2 WEEKS OF TREATMENT FOLLOWED BY A REST PERI
     Route: 048
  2. TS-1 [Suspect]
     Active Substance: GIMERACIL\OTERACIL\TEGAFUR
     Indication: NASOPHARYNGEAL CANCER METASTATIC
     Dosage: FOR 2 WEEKS FOLLOWED BY A 2-WEEK REST, AT THE FOLLOWING DOSES BASED ON BODY SURFACE AREA: {1.25 M2,
     Route: 048

REACTIONS (7)
  - Mucosal inflammation [Unknown]
  - Neutropenia [Unknown]
  - Anaemia [Unknown]
  - Palmar-plantar erythrodysaesthesia syndrome [Unknown]
  - Gastrointestinal toxicity [Unknown]
  - Thrombocytopenia [Unknown]
  - Hepatic function abnormal [Unknown]
